FAERS Safety Report 6072375-1 (Version None)
Quarter: 2009Q1

REPORT INFORMATION
  Report Type: 
  Country: None (occurrence: None)
  Receive Date: 20090210
  Receipt Date: 20090204
  Transmission Date: 20090719
  Serious: Yes (Hospitalization, Other)
  Sender: FDA-Public Use
  Company Number: PHHY2009JP01349

PATIENT
  Sex: Male
  Weight: 65 kg

DRUGS (2)
  1. NEORAL [Suspect]
     Indication: PUSTULAR PSORIASIS
     Dosage: 100 MG/DAY
     Route: 048
     Dates: start: 20081106, end: 20090108
  2. OMEPRAZOLE [Concomitant]
     Dosage: UNK
     Route: 048

REACTIONS (9)
  - ABDOMINAL PAIN [None]
  - ABDOMINAL PAIN UPPER [None]
  - BILE DUCT STONE [None]
  - CHOLELITHIASIS [None]
  - GASTRITIS [None]
  - HEPATIC FUNCTION ABNORMAL [None]
  - PANCREATIC ENZYMES INCREASED [None]
  - PANCREATITIS [None]
  - REFLUX OESOPHAGITIS [None]
